FAERS Safety Report 8296034-X (Version None)
Quarter: 2012Q2

REPORT INFORMATION
  Report Type: 
  Country: None (occurrence: None)
  Receive Date: 20120418
  Receipt Date: 20120412
  Transmission Date: 20120825
  Serious: Yes (Hospitalization)
  Sender: FDA-Public Use
  Company Number: US-GLAXOSMITHKLINE-A0794858A

PATIENT
  Age: 63 Year
  Sex: Female
  Weight: 109.1 kg

DRUGS (9)
  1. AVANDAMET [Suspect]
     Indication: TYPE 2 DIABETES MELLITUS
     Dosage: 1TAB TWICE PER DAY
     Route: 048
     Dates: start: 20051101
  2. PEPCID [Concomitant]
  3. CRESTOR [Concomitant]
  4. AVANDIA [Suspect]
     Indication: TYPE 2 DIABETES MELLITUS
     Dosage: 8MG PER DAY
     Route: 048
     Dates: start: 19990101, end: 20070601
  5. METFORMIN HCL [Concomitant]
  6. ATENOLOL [Concomitant]
  7. GLYBURIDE [Concomitant]
  8. VASOTEC [Concomitant]
  9. INSULIN [Concomitant]

REACTIONS (14)
  - PAIN IN EXTREMITY [None]
  - ASTHENIA [None]
  - DYSPNOEA [None]
  - BONE PAIN [None]
  - ANXIETY [None]
  - ARRHYTHMIA [None]
  - EPISTAXIS [None]
  - STRESS [None]
  - CARDIAC DISORDER [None]
  - WEIGHT INCREASED [None]
  - JOINT SWELLING [None]
  - DIZZINESS [None]
  - FATIGUE [None]
  - DEPRESSION [None]
